FAERS Safety Report 4553238-7 (Version None)
Quarter: 2005Q1

REPORT INFORMATION
  Report Type: 
  Country: None (occurrence: None)
  Receive Date: 20050113
  Receipt Date: 20041229
  Transmission Date: 20050727
  Serious: Yes (Congenital Anomaly)
  Sender: FDA-Public Use
  Company Number: 2004-0007737

PATIENT
  Age: 1 Day
  Sex: Male
  Weight: 3.37 kg

DRUGS (5)
  1. VIREAD [Suspect]
     Indication: HIV INFECTION
     Dosage: 1 IN 1 D, TRANSPLACENTAL
     Route: 064
     Dates: start: 20040601, end: 20040720
  2. VIRACEPT [Concomitant]
  3. COMBIVIR [Concomitant]
  4. KALETRA [Concomitant]
  5. RETROVIR [Concomitant]

REACTIONS (6)
  - ABDOMINAL DISTENSION [None]
  - ABDOMINAL HERNIA [None]
  - CARDIAC MURMUR [None]
  - CONGENITAL ANOMALY [None]
  - DRUG EXPOSURE DURING PREGNANCY [None]
  - TESTICULAR DISORDER [None]
